FAERS Safety Report 16672722 (Version 1)
Quarter: 2019Q3

REPORT INFORMATION
  Report Type: Spontaneous
  Country: CN (occurrence: CN)
  Receive Date: 20190806
  Receipt Date: 20190806
  Transmission Date: 20191004
  Serious: Yes (Hospitalization, Other)
  Sender: FDA-Public Use
  Company Number: CN-GLAXOSMITHKLINE-CN2019142057

PATIENT
  Age: 86 Year
  Sex: Female
  Weight: 42 kg

DRUGS (4)
  1. VOLTAREN [Suspect]
     Active Substance: DICLOFENAC SODIUM
     Indication: HEADACHE
  2. VOLTAREN [Suspect]
     Active Substance: DICLOFENAC SODIUM
     Indication: ARTHRALGIA
     Dosage: 25 MG, QD
     Route: 048
     Dates: start: 20190701, end: 20190718
  3. FENBID [Suspect]
     Active Substance: IBUPROFEN
     Indication: ARTHRALGIA
     Dosage: 0.3 G, QD
     Route: 048
     Dates: start: 20190701, end: 20190718
  4. FENBID [Suspect]
     Active Substance: IBUPROFEN
     Indication: HEADACHE

REACTIONS (1)
  - Upper gastrointestinal haemorrhage [Recovering/Resolving]

NARRATIVE: CASE EVENT DATE: 20190718
